FAERS Safety Report 12351892 (Version 3)
Quarter: 2016Q2

REPORT INFORMATION
  Report Type: Spontaneous
  Country: US (occurrence: US)
  Receive Date: 20160510
  Receipt Date: 20160530
  Transmission Date: 20160815
  Serious: No
  Sender: FDA-Public Use
  Company Number: US-PFIZER INC-2016247650

PATIENT
  Age: 90 Year
  Sex: Male
  Weight: 82 kg

DRUGS (13)
  1. VIAGRA [Suspect]
     Active Substance: SILDENAFIL CITRATE
     Dosage: 25 MG, UNK (50MG 1/2 TABLET)
     Route: 048
  2. PRAVASTATIN [Concomitant]
     Active Substance: PRAVASTATIN\PRAVASTATIN SODIUM
     Dosage: 20 MG, 1X/DAY (ONE TIME AT NIGHT)
  3. DIAZEPAM. [Concomitant]
     Active Substance: DIAZEPAM
     Dosage: 3 MG (2MG TABLETS, 1 AND A HALF), AT NIGHT
  4. GABAPENTIN. [Concomitant]
     Active Substance: GABAPENTIN
     Dosage: 300 MG, DAILY (300MG CAPSULE AT NIGHT)
  5. ASPIRIN. [Concomitant]
     Active Substance: ASPIRIN
     Dosage: 81 MG, DAILY (1 TABLET IN AM)
  6. AMLODIPINE [Concomitant]
     Active Substance: AMLODIPINE BESYLATE
     Dosage: 5 MG, DAILY (1 TABLET IN THE AM)
  7. VIAGRA [Suspect]
     Active Substance: SILDENAFIL CITRATE
     Dosage: 50 MG, UNK
     Route: 048
  8. AVODART [Concomitant]
     Active Substance: DUTASTERIDE
     Indication: PROSTATIC DISORDER
     Dosage: 5 MG, DAILY (1 IN THE MORNING)
  9. TAMSULIN [Concomitant]
     Dosage: 4 MG, DAILY (IN THE MORNING)
  10. PROMETHAZINE [Concomitant]
     Active Substance: PROMETHAZINE\PROMETHAZINE HYDROCHLORIDE
     Dosage: 15 MG, UNK
  11. VIAGRA [Suspect]
     Active Substance: SILDENAFIL CITRATE
     Indication: ERECTILE DYSFUNCTION
     Dosage: 25 MG, UNK (50MG 1/2 TABLET)
     Route: 048
     Dates: start: 201604
  12. VIAGRA [Suspect]
     Active Substance: SILDENAFIL CITRATE
     Dosage: 100 MG, UNK
     Route: 048
  13. VIAGRA [Suspect]
     Active Substance: SILDENAFIL CITRATE
     Dosage: 100 MG, DAILY (AS NEEDED)
     Route: 048
     Dates: start: 20160314

REACTIONS (1)
  - Drug ineffective [Not Recovered/Not Resolved]
